FAERS Safety Report 21330777 (Version 1)
Quarter: 2022Q3

REPORT INFORMATION
  Report Type: Spontaneous
  Country: IT (occurrence: IT)
  Receive Date: 20220914
  Receipt Date: 20220914
  Transmission Date: 20221027
  Serious: Yes (Death, Hospitalization)
  Sender: FDA-Public Use
  Company Number: IT-STRIDES ARCOLAB LIMITED-2022SP011587

PATIENT
  Age: 83 Month
  Sex: Female

DRUGS (6)
  1. METHOTREXATE [Suspect]
     Active Substance: METHOTREXATE
     Indication: Medulloblastoma
     Dosage: 8 G/M2 (AT WEEK 0 AND 1)
     Route: 065
  2. ETOPOSIDE [Suspect]
     Active Substance: ETOPOSIDE
     Indication: Medulloblastoma
     Dosage: 2.4 G/M2 (AT WEEK 4)
     Route: 065
  3. CYCLOPHOSPHAMIDE [Suspect]
     Active Substance: CYCLOPHOSPHAMIDE
     Indication: Medulloblastoma
     Dosage: 4 G/M2 (AT WEEK 7)
     Route: 065
  4. VINCRISTINE [Suspect]
     Active Substance: VINCRISTINE
     Indication: Medulloblastoma
     Dosage: 1.4 MILLIGRAM/SQ. METER (AT WEEK 0 AND 1)
     Route: 065
  5. CARBOPLATIN [Suspect]
     Active Substance: CARBOPLATIN
     Indication: Medulloblastoma
     Dosage: 800 MILLIGRAM/SQ. METER (ON THE WEEK 7)
     Route: 065
  6. THIOTEPA [Suspect]
     Active Substance: THIOTEPA
     Indication: Medulloblastoma
     Dosage: 300 MILLIGRAM/SQ. METER (FOR 3 CONSECUTIVE DAYS)
     Route: 065

REACTIONS (3)
  - Cardiotoxicity [Unknown]
  - Atrial tachycardia [Unknown]
  - Drug ineffective for unapproved indication [Fatal]
